FAERS Safety Report 11915317 (Version 1)
Quarter: 2016Q1

REPORT INFORMATION
  Report Type: Spontaneous
  Country: IT (occurrence: IT)
  Receive Date: 20160114
  Receipt Date: 20160114
  Transmission Date: 20160526
  Serious: Yes (Death)
  Sender: FDA-Public Use
  Company Number: IT-CIPLA LTD.-2016IT00009

PATIENT

DRUGS (1)
  1. IRBESARTAN/HYDROCHLOROTHIAZIDE [Suspect]
     Active Substance: HYDROCHLOROTHIAZIDE\IRBESARTAN
     Indication: SYSTOLIC HYPERTENSION
     Dosage: 150/12.5 MG, QD
     Route: 048

REACTIONS (1)
  - Death [Fatal]
